FAERS Safety Report 5730764-6 (Version None)
Quarter: 2008Q2

REPORT INFORMATION
  Report Type: 
  Country: None (occurrence: None)
  Receive Date: 20080507
  Receipt Date: 20080430
  Transmission Date: 20081010
  Serious: Yes (Other)
  Sender: FDA-Public Use
  Company Number: CH-WYE-G01485108

PATIENT
  Age: 39 Year
  Sex: Female

DRUGS (7)
  1. EFFEXOR [Suspect]
     Indication: DEPRESSION
     Route: 048
     Dates: start: 20061110, end: 20080101
  2. EFFEXOR [Suspect]
     Route: 048
     Dates: start: 20080101
  3. EFFEXOR [Suspect]
     Route: 048
     Dates: start: 20080101
  4. STILNOX [Concomitant]
     Indication: DEPRESSION
     Route: 048
     Dates: start: 20061111
  5. LAMICTAL [Concomitant]
     Indication: BIPOLAR DISORDER
     Route: 048
     Dates: start: 20061115
  6. PRAMIPEXOLE DIHYDROCHLORIDE [Suspect]
     Indication: RESTLESS LEGS SYNDROME
     Route: 048
     Dates: start: 20080130
  7. PRAMIPEXOLE DIHYDROCHLORIDE [Suspect]
     Indication: AGITATION

REACTIONS (8)
  - AGITATION [None]
  - CONDITION AGGRAVATED [None]
  - DEPRESSION [None]
  - EARLY MORNING AWAKENING [None]
  - HYPOMANIA [None]
  - PSYCHOMOTOR HYPERACTIVITY [None]
  - RESTLESS LEGS SYNDROME [None]
  - SLEEP DISORDER [None]
